FAERS Safety Report 9357048 (Version 1)
Quarter: 2013Q2

REPORT INFORMATION
  Report Type: Spontaneous
  Country: US (occurrence: None)
  Receive Date: 20130617
  Receipt Date: 20130617
  Transmission Date: 20140414
  Serious: Yes (Other)
  Sender: FDA-Public Use
  Company Number: AMAG201300093

PATIENT
  Age: 82 Year
  Sex: Male

DRUGS (1)
  1. FERAHEME [Suspect]
     Route: 042

REACTIONS (3)
  - Painful respiration [None]
  - Feeling abnormal [None]
  - Blood pressure increased [None]
